FAERS Safety Report 9918984 (Version 1)
Quarter: 2014Q1

REPORT INFORMATION
  Report Type: Spontaneous
  Country: US (occurrence: US)
  Receive Date: 20140224
  Receipt Date: 20140224
  Transmission Date: 20141002
  Serious: No
  Sender: FDA-Public Use
  Company Number: US-BRISTOL-MYERS SQUIBB COMPANY-17381856

PATIENT
  Age: 75 Year
  Sex: Female

DRUGS (5)
  1. METFORMIN HCL [Suspect]
     Dosage: PREVIOUSLY TOOK 2.5 MG
  2. ARMOUR THYROID [Concomitant]
  3. METHYLIN [Concomitant]
  4. PROPRANOLOL [Concomitant]
  5. PRAVASTATIN SODIUM [Concomitant]

REACTIONS (1)
  - Malaise [Unknown]
